FAERS Safety Report 5499636-9 (Version None)
Quarter: 2007Q4

REPORT INFORMATION
  Report Type: 
  Country: None (occurrence: None)
  Receive Date: 20071026
  Receipt Date: 20071023
  Transmission Date: 20080405
  Serious: Yes (Hospitalization)
  Sender: FDA-Public Use
  Company Number: KR-SANOFI-SYNTHELABO-A01200711933

PATIENT
  Age: 72 Year
  Sex: Male

DRUGS (3)
  1. LEUCOVORIN [Concomitant]
     Indication: GASTRIC CANCER
     Dosage: UNK
     Route: 065
  2. FLUOROURACIL [Concomitant]
     Indication: GASTRIC CANCER
     Dosage: UNK
     Route: 065
  3. ELOXATIN [Suspect]
     Indication: GASTRIC CANCER
     Route: 042

REACTIONS (1)
  - SCLERODERMA [None]
